FAERS Safety Report 7757746-7 (Version None)
Quarter: 2011Q3

REPORT INFORMATION
  Report Type: 
  Country: None (occurrence: None)
  Receive Date: 20110917
  Receipt Date: 20110905
  Transmission Date: 20111222
  Serious: Yes (Other)
  Sender: FDA-Public Use
  Company Number: GB-MYLANLABS-2011S1018658

PATIENT
  Age: 65 Year
  Sex: Female

DRUGS (3)
  1. ANASTROZOLE [Suspect]
     Indication: BREAST CANCER
  2. THERAPEUTIC RADIOPHARMACEUTICALS [Concomitant]
     Indication: BREAST CANCER
  3. DIURETIC [Concomitant]

REACTIONS (2)
  - ARTHRALGIA [None]
  - MOBILITY DECREASED [None]
